FAERS Safety Report 6380450-7 (Version None)
Quarter: 2009Q3

REPORT INFORMATION
  Report Type: 
  Country: None (occurrence: None)
  Receive Date: 20090929
  Receipt Date: 20090921
  Transmission Date: 20100115
  Serious: Yes (Hospitalization)
  Sender: FDA-Public Use
  Company Number: US-BRISTOL-MYERS SQUIBB COMPANY-14788814

PATIENT
  Age: 60 Year
  Sex: Male
  Weight: 86 kg

DRUGS (8)
  1. DASATINIB [Suspect]
     Indication: LUNG SQUAMOUS CELL CARCINOMA STAGE UNSPECIFIED
     Route: 048
     Dates: start: 20090824, end: 20090915
  2. TAXOL [Suspect]
     Indication: LUNG SQUAMOUS CELL CARCINOMA STAGE UNSPECIFIED
     Route: 042
     Dates: start: 20090824, end: 20090915
  3. CARBOPLATIN [Suspect]
     Indication: LUNG SQUAMOUS CELL CARCINOMA STAGE UNSPECIFIED
     Dosage: 1 DOSAGE FORM = AUC 2
     Route: 042
     Dates: start: 20090824, end: 20090915
  4. RADIATION THERAPY [Suspect]
     Indication: LUNG SQUAMOUS CELL CARCINOMA STAGE UNSPECIFIED
     Dosage: 1 DF = 1.8 GY MON-FRI
     Dates: start: 20090824, end: 20090915
  5. AMLODIPINE [Concomitant]
     Indication: HYPERTENSION
  6. MINIPRESS [Concomitant]
     Indication: HYPERTENSION
  7. HYDROCHLOROTHIAZIDE [Concomitant]
     Indication: HYPERTENSION
  8. PREDNISONE TAB [Concomitant]
     Indication: PARANEOPLASTIC SYNDROME

REACTIONS (2)
  - HYPERSENSITIVITY [None]
  - MYOCARDIAL ISCHAEMIA [None]
